FAERS Safety Report 7951240-6 (Version None)
Quarter: 2011Q4

REPORT INFORMATION
  Report Type: 
  Country: None (occurrence: None)
  Receive Date: 20111201
  Receipt Date: 20080306
  Transmission Date: 20120403
  Serious: No
  Sender: FDA-Public Use
  Company Number: 2008BI006882

PATIENT
  Sex: Female

DRUGS (3)
  1. OXYCODONE HCL [Concomitant]
     Indication: PAIN
     Route: 048
  2. OXYCODONE HCL [Concomitant]
     Indication: INSOMNIA
     Route: 048
  3. TYSABRI [Suspect]
     Indication: MULTIPLE SCLEROSIS
     Route: 042
     Dates: start: 20071213

REACTIONS (17)
  - RESTLESS LEGS SYNDROME [None]
  - ARTHRITIS [None]
  - ARTHRALGIA [None]
  - JOINT STIFFNESS [None]
  - WEIGHT INCREASED [None]
  - JOINT EFFUSION [None]
  - ASTHENIA [None]
  - VERTIGO [None]
  - FAECAL INCONTINENCE [None]
  - CENTRAL NERVOUS SYSTEM LESION [None]
  - URINARY TRACT INFECTION [None]
  - FATIGUE [None]
  - URINARY INCONTINENCE [None]
  - HEADACHE [None]
  - BACK PAIN [None]
  - DEPRESSION [None]
  - DIZZINESS [None]
